FAERS Safety Report 9561121 (Version 1)
Quarter: 2013Q3

REPORT INFORMATION
  Report Type: Spontaneous
  Country: US (occurrence: US)
  Receive Date: 20130927
  Receipt Date: 20130927
  Transmission Date: 20140515
  Serious: No
  Sender: FDA-Public Use
  Company Number: US-BIOGENIDEC-2013BI056649

PATIENT
  Age: 63 Year
  Sex: Female

DRUGS (11)
  1. TECFIDERA [Suspect]
     Indication: MULTIPLE SCLEROSIS
     Route: 048
     Dates: start: 20130611
  2. TECFIDERA [Suspect]
     Indication: MULTIPLE SCLEROSIS
     Route: 048
     Dates: start: 201306
  3. CYMBALTA [Concomitant]
  4. REQUIP [Concomitant]
  5. XANAX [Concomitant]
  6. LYRICA [Concomitant]
  7. TRIMETHOPRIM [Concomitant]
  8. MIDODRINE [Concomitant]
  9. TYLENOL [Concomitant]
  10. ZANAFLEX [Concomitant]
  11. ZEGRERID [Concomitant]

REACTIONS (7)
  - Swelling face [Not Recovered/Not Resolved]
  - Restlessness [Unknown]
  - Flushing [Unknown]
  - Feeling hot [Unknown]
  - Rash macular [Unknown]
  - Pruritus [Unknown]
  - Rash [Unknown]
